FAERS Safety Report 13863730 (Version 2)
Quarter: 2017Q3

REPORT INFORMATION
  Report Type: Report from Study
  Country: VE (occurrence: VE)
  Receive Date: 20170814
  Receipt Date: 20170827
  Transmission Date: 20171127
  Serious: Yes (Death, Other)
  Sender: FDA-Public Use
  Company Number: PHHY2017VE118948

PATIENT
  Age: 43 Year
  Sex: Female
  Weight: 35 kg

DRUGS (2)
  1. SANDOSTATIN LAR DEPOT [Suspect]
     Active Substance: OCTREOTIDE ACETATE
     Indication: GASTROENTEROPANCREATIC NEUROENDOCRINE TUMOUR DISEASE
     Dosage: 20 MG, QMO
     Route: 030
     Dates: start: 20170313, end: 201705
  2. CISPLATIN. [Concomitant]
     Active Substance: CISPLATIN
     Indication: NEOPLASM
     Dosage: 40 MG, QW (WEEKLY)
     Route: 065

REACTIONS (11)
  - Blister [Unknown]
  - Haemoglobin decreased [Unknown]
  - Sepsis [Unknown]
  - Renal failure [Unknown]
  - Renal disorder [Unknown]
  - Death [Fatal]
  - Malignant neoplasm progression [Unknown]
  - Infection [Unknown]
  - Blister rupture [Unknown]
  - Oncologic complication [Unknown]
  - Pyrexia [Unknown]

NARRATIVE: CASE EVENT DATE: 20170628
